FAERS Safety Report 4780331-6 (Version None)
Quarter: 2005Q3

REPORT INFORMATION
  Report Type: 
  Country: None (occurrence: None)
  Receive Date: 20050926
  Receipt Date: 20050902
  Transmission Date: 20060218
  Serious: Yes (Death, Hospitalization, Other)
  Sender: FDA-Public Use
  Company Number: 2005123752

PATIENT
  Age: 83 Year
  Sex: Male

DRUGS (8)
  1. BEXTRA [Suspect]
     Indication: OSTEOARTHRITIS
     Dosage: 10 MG
     Dates: start: 20041018
  2. ASPIRIN [Concomitant]
  3. PLAVIX [Concomitant]
  4. ATENOLOL [Concomitant]
  5. ZOCOR [Concomitant]
  6. VIAGRA [Concomitant]
  7. LOTENSIN [Concomitant]
  8. LISINOPRIL [Concomitant]

REACTIONS (12)
  - ACUTE RESPIRATORY DISTRESS SYNDROME [None]
  - DISSEMINATED INTRAVASCULAR COAGULATION [None]
  - GENERAL PHYSICAL HEALTH DETERIORATION [None]
  - HYPOTENSION [None]
  - LOBAR PNEUMONIA [None]
  - METABOLIC ACIDOSIS [None]
  - MULTI-ORGAN FAILURE [None]
  - MYOCARDIAL ISCHAEMIA [None]
  - RENAL TUBULAR NECROSIS [None]
  - SEPTIC SHOCK [None]
  - STEVENS-JOHNSON SYNDROME [None]
  - TOXIC EPIDERMAL NECROLYSIS [None]
